FAERS Safety Report 9668283 (Version 3)
Quarter: 2014Q2

REPORT INFORMATION
  Report Type: Spontaneous
  Country: FR (occurrence: FR)
  Receive Date: 20131104
  Receipt Date: 20140528
  Transmission Date: 20141212
  Serious: Yes (Other)
  Sender: FDA-Public Use
  Company Number: FR-ABBVIE-13P-056-1164875-00

PATIENT
  Age: 28 Year
  Sex: Male

DRUGS (6)
  1. DEPAKOTE [Suspect]
     Indication: PRODUCT USED FOR UNKNOWN INDICATION
     Route: 048
     Dates: start: 20030117
  2. BACLOFEN [Suspect]
     Indication: PRODUCT USED FOR UNKNOWN INDICATION
     Dosage: 20-10-20 MG
     Route: 048
     Dates: start: 20130613
  3. LOXAPAC [Suspect]
     Indication: PRODUCT USED FOR UNKNOWN INDICATION
     Route: 048
     Dates: start: 20130613
  4. XEPLION [Suspect]
     Indication: PRODUCT USED FOR UNKNOWN INDICATION
     Dates: start: 20130228
  5. AUGMENTIN [Concomitant]
     Indication: PRODUCT USED FOR UNKNOWN INDICATION
     Dates: start: 20130814, end: 20130824
  6. FLAGYL [Concomitant]
     Indication: PRODUCT USED FOR UNKNOWN INDICATION
     Dates: start: 20130813, end: 20130823

REACTIONS (1)
  - Deep vein thrombosis [Not Recovered/Not Resolved]
